FAERS Safety Report 6636295-3 (Version None)
Quarter: 2010Q1

REPORT INFORMATION
  Report Type: 
  Country: None (occurrence: None)
  Receive Date: 20100311
  Receipt Date: 20100225
  Transmission Date: 20100710
  Serious: Yes (Hospitalization)
  Sender: FDA-Public Use
  Company Number: 2009AC000275

PATIENT
  Age: 82 Year
  Sex: Female

DRUGS (25)
  1. DIGOXIN [Suspect]
     Dosage: 0.25 MG, PO
     Route: 048
     Dates: start: 20050101
  2. DIGOXIN [Suspect]
     Dosage: .25 MG PO
     Route: 048
  3. DIGOXIN [Suspect]
     Dosage: PO
     Route: 048
     Dates: start: 20090701
  4. HYDROCODON/APAP [Concomitant]
  5. VICODIN [Concomitant]
  6. MECLIZINE [Concomitant]
  7. CLOTRIMAZOLE/BETAMETH CREAM [Concomitant]
  8. IBUPROFEN [Concomitant]
  9. AMOXICILLIN/CLAV [Concomitant]
  10. PROMETHAZINE [Concomitant]
  11. PENICILLIN [Concomitant]
  12. NYSTATIN/TRIAMCINOLONE [Concomitant]
  13. ACETAMINOPHEN W/ CODEINE NO. 3 [Concomitant]
  14. PREVACID [Concomitant]
  15. FLUCONAZOLE [Concomitant]
  16. TRIAMCINOLONE [Concomitant]
  17. HYDROXYZINE [Concomitant]
  18. PROPOXYPHENE NAPSYLATE AND ACETAMINOPHEN [Concomitant]
  19. TORADOL [Concomitant]
  20. LIPITOR [Concomitant]
  21. CEPHALEXIN [Concomitant]
  22. COUMADIN [Concomitant]
  23. AMLODIPINE [Concomitant]
  24. METOPROLOL [Concomitant]
  25. LISINOPRIL [Concomitant]

REACTIONS (19)
  - ATRIAL FIBRILLATION [None]
  - BACK PAIN [None]
  - BLOOD DISORDER [None]
  - ECONOMIC PROBLEM [None]
  - HYPERLIPIDAEMIA [None]
  - HYPERTENSION [None]
  - INTERNATIONAL NORMALISED RATIO INCREASED [None]
  - LEFT VENTRICULAR DYSFUNCTION [None]
  - MULTIPLE INJURIES [None]
  - MUSCULOSKELETAL PAIN [None]
  - MYALGIA [None]
  - MYOCARDIAL INFARCTION [None]
  - PROTHROMBIN TIME PROLONGED [None]
  - PRURITUS [None]
  - RESTLESSNESS [None]
  - SINUS DISORDER [None]
  - SWELLING FACE [None]
  - THERAPEUTIC AGENT TOXICITY [None]
  - VISION BLURRED [None]
